FAERS Safety Report 14534372 (Version 14)
Quarter: 2018Q2

REPORT INFORMATION
  Report Type: Report from Study
  Country: PT (occurrence: PT)
  Receive Date: 20180215
  Receipt Date: 20180614
  Transmission Date: 20180711
  Serious: Yes (Life-Threatening, Hospitalization)
  Sender: FDA-Public Use
  Company Number: PT-ROCHE-2068007

PATIENT
  Age: 56 Year
  Sex: Female
  Weight: 69 kg

DRUGS (29)
  1. VOLTAREN [Concomitant]
     Active Substance: DICLOFENAC SODIUM
     Route: 048
     Dates: start: 20180122, end: 20180131
  2. JURNISTA [Concomitant]
     Active Substance: HYDROMORPHONE HYDROCHLORIDE
     Route: 048
     Dates: start: 20180129, end: 20180131
  3. PARACETAMOL [Concomitant]
     Active Substance: ACETAMINOPHEN
     Route: 048
     Dates: start: 20180129, end: 20180131
  4. MORPHINE [Concomitant]
     Active Substance: MORPHINE
     Route: 058
     Dates: start: 20180313
  5. ZILPEN [Concomitant]
     Active Substance: ACETAMINOPHEN\TRAMADOL HYDROCHLORIDE
     Route: 048
     Dates: start: 20180222, end: 20180226
  6. ATEZOLIZUMAB. [Suspect]
     Active Substance: ATEZOLIZUMAB
     Indication: MALIGNANT URINARY TRACT NEOPLASM
     Dosage: MOST RECENT DOSE ON 16/JAN/2018
     Route: 042
     Dates: start: 20180116
  7. ZOLPIDEM [Concomitant]
     Active Substance: ZOLPIDEM\ZOLPIDEM TARTRATE
     Indication: PROPHYLAXIS
     Route: 048
  8. AMOXICILLIN/CLAVULANIC ACID [Concomitant]
     Active Substance: AMOXICILLIN\CLAVULANIC ACID
     Indication: URINARY TRACT INFECTION
     Route: 048
     Dates: start: 20180228, end: 20180307
  9. CASENLAX [Concomitant]
     Indication: CONSTIPATION
     Route: 048
     Dates: start: 20180228, end: 20180312
  10. MORPHINE [Concomitant]
     Active Substance: MORPHINE
     Indication: CANCER PAIN
     Route: 058
     Dates: start: 20180201, end: 20180215
  11. TRAMADOL. [Concomitant]
     Active Substance: TRAMADOL
     Indication: CANCER PAIN
     Route: 042
     Dates: start: 20180131, end: 20180201
  12. TRAMADOL. [Concomitant]
     Active Substance: TRAMADOL
     Route: 048
     Dates: start: 20180222, end: 20180226
  13. NALOXONA [Concomitant]
     Indication: TOXICITY TO VARIOUS AGENTS
     Route: 042
     Dates: start: 20180131, end: 20180131
  14. MORPHINE [Concomitant]
     Active Substance: MORPHINE
     Route: 048
     Dates: start: 20180226, end: 20180320
  15. MORPHINE [Concomitant]
     Active Substance: MORPHINE
     Route: 048
     Dates: start: 20180321
  16. HYDROCORTISONE. [Concomitant]
     Active Substance: HYDROCORTISONE
     Indication: CANCER PAIN
     Route: 042
     Dates: start: 20180326, end: 20180326
  17. METOCLOPRAMIDE. [Concomitant]
     Active Substance: METOCLOPRAMIDE
     Route: 048
     Dates: end: 20180226
  18. ZALDIAR [Concomitant]
     Active Substance: ACETAMINOPHEN\TRAMADOL HYDROCHLORIDE
     Dosage: TRAMADOL 37.5 MG/PARACETAMOL 325 MG
     Route: 048
     Dates: start: 20180111, end: 20180221
  19. ZOMARIST (PORTUGAL) [Concomitant]
     Route: 048
     Dates: start: 2017, end: 20180216
  20. PARACETAMOL [Concomitant]
     Active Substance: ACETAMINOPHEN
     Route: 042
     Dates: start: 20180201, end: 20180215
  21. PREDNISOLONE. [Concomitant]
     Active Substance: PREDNISOLONE
     Route: 048
     Dates: start: 20180306, end: 20180326
  22. TRAVEX RAPID [Concomitant]
     Route: 061
     Dates: end: 20180222
  23. VOLTAREN [Concomitant]
     Active Substance: DICLOFENAC SODIUM
     Route: 048
     Dates: end: 20180222
  24. OMEGA 3 [Concomitant]
     Active Substance: OMEGA-3 FATTY ACIDS
     Route: 048
  25. ZOMARIST (PORTUGAL) [Concomitant]
     Route: 048
     Dates: start: 20180222, end: 20180313
  26. ZOLEDRONATE [Concomitant]
     Active Substance: ZOLEDRONIC ACID
     Route: 042
     Dates: start: 20180226, end: 20180226
  27. SEVREDOL [Concomitant]
     Active Substance: MORPHINE
     Route: 048
     Dates: start: 20180226, end: 20180313
  28. ZILPEN [Concomitant]
     Active Substance: ACETAMINOPHEN\TRAMADOL HYDROCHLORIDE
     Route: 048
     Dates: start: 20180122, end: 20180128
  29. PREDNISOLONE. [Concomitant]
     Active Substance: PREDNISOLONE
     Indication: CANCER PAIN
     Route: 048
     Dates: start: 20180228, end: 20180305

REACTIONS (2)
  - Sepsis [Recovered/Resolved]
  - Haemolytic anaemia [Recovered/Resolved]

NARRATIVE: CASE EVENT DATE: 20180131
